FAERS Safety Report 8490202-X (Version None)
Quarter: 2012Q3

REPORT INFORMATION
  Report Type: 
  Country: None (occurrence: None)
  Receive Date: 20120705
  Receipt Date: 20110819
  Transmission Date: 20120928
  Serious: No
  Sender: FDA-Public Use
  Company Number: US-BAUSCH-2011BL005501

PATIENT
  Age: 92 Year
  Sex: Female
  Weight: 64 kg

DRUGS (13)
  1. LISINOPRIL [Concomitant]
     Indication: HYPERTENSION
  2. HYDROCHLOROTHIAZIDE [Concomitant]
  3. SIMVASTATIN [Concomitant]
  4. CINNAMIN 200 [Concomitant]
  5. VITAMIN D [Concomitant]
  6. MULTI-VITAMINS [Concomitant]
  7. VACCINIUM MACROCARPON [Concomitant]
  8. VITAMIN D [Concomitant]
  9. ASPIRIN [Concomitant]
  10. OPCON-A [Suspect]
     Indication: EYE PRURITUS
     Route: 047
     Dates: start: 20110817, end: 20110817
  11. OMEPRAZOLE [Concomitant]
     Indication: GASTROOESOPHAGEAL REFLUX DISEASE
  12. TYLENOL                                 /USA/ [Concomitant]
  13. FISH OIL [Concomitant]

REACTIONS (1)
  - SOMNOLENCE [None]
